FAERS Safety Report 8926575 (Version 1)
Quarter: 2012Q4

REPORT INFORMATION
  Report Type: 
  Country: GB (occurrence: GB)
  Receive Date: 20121127
  Receipt Date: 20121127
  Transmission Date: 20130627
  Serious: Yes (Hospitalization)
  Sender: FDA-Public Use
  Company Number: GB-PFIZER INC-2012294529

PATIENT
  Age: 61 Year
  Sex: Male

DRUGS (35)
  1. RAMIPRIL [Suspect]
     Dosage: 2.5 mg, 2x/day
     Route: 048
     Dates: start: 20101103, end: 20111026
  2. RAMIPRIL [Suspect]
     Dosage: 3.75 mg, daily
     Route: 048
     Dates: start: 20111026, end: 20120705
  3. RAMIPRIL [Suspect]
     Dosage: 5 mg, daily
     Route: 048
     Dates: start: 20111026, end: 20120705
  4. RAMIPRIL [Suspect]
     Dosage: 2.5 mg, 1x/day
     Route: 048
     Dates: start: 20120706, end: 20120727
  5. BURINEX [Suspect]
     Dosage: 2 mg, daily
     Route: 048
     Dates: start: 20101102, end: 20110309
  6. BURINEX [Suspect]
     Dosage: 2 mg, daily
     Route: 048
     Dates: start: 20120604, end: 20120727
  7. ALEGLITAZAR [Suspect]
     Indication: CARDIOVASCULAR EVENT PROPHYLAXIS
     Dosage: UNK, daily
     Route: 048
     Dates: start: 20101122
  8. LEVEMIR [Concomitant]
     Dosage: 30 IU, UNK
     Route: 058
     Dates: start: 20020408, end: 20111212
  9. LEVEMIR [Concomitant]
     Dosage: 31 IU, UNK
     Route: 058
     Dates: start: 20111212, end: 20120602
  10. LEVEMIR [Concomitant]
     Dosage: 10 IU, daily
     Route: 058
     Dates: start: 20120815
  11. DIAZEPAM [Concomitant]
     Dosage: UNK
     Route: 048
     Dates: start: 20120623
  12. FUROSEMIDE [Concomitant]
     Dosage: 80 mg, 2x/day
     Route: 048
     Dates: start: 20101217, end: 20110309
  13. FUROSEMIDE [Concomitant]
     Dosage: 80 mg, 1x/day
     Route: 048
     Dates: start: 20110309, end: 20120604
  14. FUROSEMIDE [Concomitant]
     Dosage: 120 mg, 1x/day
     Route: 048
     Dates: start: 20110309, end: 20110705
  15. FUROSEMIDE [Concomitant]
     Dosage: 100 mg, UNK
     Route: 048
     Dates: start: 20110705, end: 20120604
  16. BENDROFLUMETHIAZIDE [Concomitant]
     Dosage: 2.5 mg, 1x/day
     Route: 048
     Dates: start: 20101104, end: 20110516
  17. BENDROFLUMETHIAZIDE [Concomitant]
     Dosage: 2.5mg 3 times a week
     Route: 048
     Dates: start: 20111206, end: 20111212
  18. BENDROFLUMETHIAZIDE [Concomitant]
     Dosage: 2.5 mg, 1x/day
     Route: 048
     Dates: start: 20111212, end: 20120604
  19. AMILORIDE [Concomitant]
     Dosage: 5 mg, 1x/day
     Route: 048
     Dates: start: 20110208, end: 20110222
  20. NORTRIPTYLINE HYDROCHLORIDE [Concomitant]
     Dosage: 10 mg, 1x/day
     Route: 048
     Dates: start: 20110117
  21. PARACETAMOL [Concomitant]
     Dosage: 1 g, 1x/day
     Route: 048
     Dates: start: 20110324
  22. EPLERENONE [Concomitant]
     Dosage: 2 mg, 1x/day
     Route: 048
     Dates: start: 20120801
  23. PREGABALIN [Concomitant]
     Dosage: 50 mg, 2x/day
     Route: 048
     Dates: start: 20120727
  24. FERROUS SULPHATE [Concomitant]
     Dosage: 200 mg, 3x/day
     Route: 048
     Dates: start: 20120727
  25. FUSIDIC ACID [Concomitant]
     Dosage: 500 mg, 3x/day
     Route: 048
     Dates: start: 20120405, end: 20120501
  26. CYCLIZINE [Concomitant]
     Dosage: 50 mg, 3x/day
     Route: 048
     Dates: start: 20120405, end: 20120501
  27. ASPIRIN [Concomitant]
     Dosage: 75 mg, 1x/day
     Route: 048
     Dates: start: 20121101
  28. CLOPIDOGREL [Concomitant]
     Dosage: 75 mg, 1x/day
     Route: 048
     Dates: start: 20101101
  29. INSPRA [Concomitant]
     Dosage: 25 mg, 1x/day
     Route: 048
     Dates: start: 20101115
  30. ROSUVASTATIN [Concomitant]
     Dosage: 40 mg, 1x/day
     Route: 048
     Dates: start: 20101102
  31. NOVORAPID [Concomitant]
     Dosage: 85 IU, 1x/day
     Route: 058
     Dates: start: 20020418, end: 20111212
  32. NOVORAPID [Concomitant]
     Dosage: 31 IU, 1x/day
     Route: 058
     Dates: start: 20111212, end: 20120602
  33. LANSOPRAZOLE [Concomitant]
     Dosage: 30 mg, 1x/day
     Route: 048
     Dates: start: 20101101
  34. BECLOMETHASONE [Concomitant]
     Dosage: 500 ug, 2x/day
     Route: 055
  35. INSULIN DETEMIR [Concomitant]
     Dosage: UNK
     Dates: start: 20020408

REACTIONS (1)
  - Fall [Recovered/Resolved]
